FAERS Safety Report 4421374-1 (Version None)
Quarter: 2004Q3

REPORT INFORMATION
  Report Type: 
  Country: None (occurrence: None)
  Receive Date: 20040804
  Receipt Date: 20040719
  Transmission Date: 20050211
  Serious: No
  Sender: FDA-Public Use
  Company Number: 2004GB01781

PATIENT
  Sex: Male

DRUGS (4)
  1. METOPROLOL [Suspect]
     Indication: HYPERTENSION
  2. CANDESARTAN [Suspect]
     Indication: HYPERTENSION
     Dosage: 16 MG DAILY PO
     Route: 048
  3. DOXAZOSIN [Suspect]
     Indication: HYPERTENSION
     Dosage: 8 MG DAILY PO
     Route: 048
  4. LERCANIDIPINE [Suspect]
     Indication: HYPERTENSION
     Dosage: 10 MG DAILY PO
     Route: 048

REACTIONS (1)
  - CEREBROVASCULAR DISORDER [None]
